FAERS Safety Report 7044657-8 (Version None)
Quarter: 2010Q4

REPORT INFORMATION
  Report Type: 
  Country: None (occurrence: None)
  Receive Date: 20101008
  Receipt Date: 20100630
  Transmission Date: 20110411
  Serious: Yes (Other)
  Sender: FDA-Public Use
  Company Number: 711472

PATIENT
  Age: 33 Year
  Sex: Male

DRUGS (24)
  1. VINCRISTINE SULFATE [Suspect]
     Indication: EWING'S SARCOMA
     Dosage: 2 MG MILLIGRAM(S),
     Dates: start: 20081215
  2. DOXORUBICIN HYDROCHLORIDE [Suspect]
     Indication: EWING'S SARCOMA
     Dosage: 40 MG MILLIGRAM(S),
     Dates: start: 20081217, end: 20081217
  3. DOXORUBICIN HYDROCHLORIDE [Suspect]
     Indication: EWING'S SARCOMA
     Dosage: 40 MG MILLIGRAM(S),
     Dates: start: 20081215
  4. DOXORUBICIN HYDROCHLORIDE [Suspect]
     Indication: EWING'S SARCOMA
     Dosage: 40 MG MILLIGRAM(S),
     Dates: start: 20081216
  5. ETOPOSIDE [Suspect]
     Indication: EWING'S SARCOMA
     Dosage: 300 MG MILLIGRAM(S),
     Dates: start: 20081217, end: 20081217
  6. ETOPOSIDE [Suspect]
     Indication: EWING'S SARCOMA
     Dosage: 300 MG MILLIGRAM(S),
     Dates: start: 20081215
  7. ETOPOSIDE [Suspect]
     Indication: EWING'S SARCOMA
     Dosage: 300 MG MILLIGRAM(S),
     Dates: start: 20081216
  8. CISPLATIN [Suspect]
     Indication: EWING'S SARCOMA
  9. (HOLOXAN) [Suspect]
     Indication: EWING'S SARCOMA
     Dosage: 6200 MG MILLIGRAM(S),; 6000 MG MILLIGRAM(S),
     Dates: start: 20081126, end: 20081128
  10. (HOLOXAN) [Suspect]
     Indication: EWING'S SARCOMA
     Dosage: 6200 MG MILLIGRAM(S),; 6000 MG MILLIGRAM(S),
     Dates: start: 20081217, end: 20081217
  11. (HOLOXAN) [Suspect]
     Indication: EWING'S SARCOMA
     Dosage: 6200 MG MILLIGRAM(S),; 6000 MG MILLIGRAM(S),
     Dates: start: 20081215
  12. (HOLOXAN) [Suspect]
     Indication: EWING'S SARCOMA
     Dosage: 6200 MG MILLIGRAM(S),; 6000 MG MILLIGRAM(S),
     Dates: start: 20081216
  13. MESNA [Suspect]
     Indication: EWING'S SARCOMA
     Dosage: 6000 MG MILLIGRAM(S),
     Dates: start: 20081217, end: 20081217
  14. MESNA [Suspect]
     Indication: EWING'S SARCOMA
     Dosage: 6000 MG MILLIGRAM(S),
     Dates: start: 20081215
  15. MESNA [Suspect]
     Indication: EWING'S SARCOMA
     Dosage: 6000 MG MILLIGRAM(S),
     Dates: start: 20081216
  16. BLEOMYCIN SULFATE [Suspect]
     Indication: EWING'S SARCOMA
  17. (DEXAMETHASONE) [Concomitant]
  18. (PARACETAMOL) [Concomitant]
  19. FRAGMIN [Concomitant]
  20. KETALAR [Concomitant]
  21. ZOFRAN [Concomitant]
  22. DUPHALAC [Concomitant]
  23. EMEND [Concomitant]
  24. MORPHINE [Concomitant]

REACTIONS (4)
  - CONFUSIONAL STATE [None]
  - INCOHERENT [None]
  - NEUROTOXICITY [None]
  - RESTLESSNESS [None]
